FAERS Safety Report 4273175-5 (Version None)
Quarter: 2004Q1

REPORT INFORMATION
  Report Type: 
  Country: None (occurrence: None)
  Receive Date: 20040116
  Receipt Date: 20040106
  Transmission Date: 20041129
  Serious: Yes (Hospitalization, Disabling)
  Sender: FDA-Public Use
  Company Number: WAES 0401USA00255

PATIENT
  Age: 75 Year
  Sex: Male
  Weight: 78 kg

DRUGS (8)
  1. ASPIRIN [Concomitant]
  2. COSOPT [Suspect]
     Indication: INTRAOCULAR PRESSURE INCREASED
     Route: 047
     Dates: start: 20031204, end: 20031208
  3. COSOPT [Suspect]
     Route: 047
     Dates: start: 20031204, end: 20031208
  4. NEXIUM [Concomitant]
  5. ALLEGRA [Concomitant]
  6. LESCOL [Concomitant]
  7. COZAAR [Concomitant]
     Route: 048
  8. TRAVATAN [Concomitant]
     Route: 047
     Dates: start: 20031007

REACTIONS (5)
  - HEART RATE DECREASED [None]
  - HYPERHIDROSIS [None]
  - LETHARGY [None]
  - NAUSEA [None]
  - SYNCOPE [None]
